FAERS Safety Report 5254455-3 (Version None)
Quarter: 2007Q1

REPORT INFORMATION
  Report Type: 
  Country: None (occurrence: None)
  Receive Date: 20070302
  Receipt Date: 20070221
  Transmission Date: 20070707
  Serious: Yes (Death, Life-Threatening)
  Sender: FDA-Public Use
  Company Number: BE-PFIZER INC-2006099946

PATIENT
  Sex: Male
  Weight: 122 kg

DRUGS (17)
  1. SU-011,248 [Suspect]
     Indication: RENAL CELL CARCINOMA STAGE UNSPECIFIED
     Route: 048
     Dates: start: 20051220, end: 20051223
  2. SU-011,248 [Suspect]
     Route: 048
     Dates: start: 20060124, end: 20060814
  3. AMOXICILLIN [Concomitant]
     Dates: start: 20060731, end: 20060809
  4. VALSARTAN [Concomitant]
  5. KREDEX [Concomitant]
     Route: 048
     Dates: start: 19990101
  6. ALLOPURINOL [Concomitant]
     Route: 048
  7. ALPRAZOLAM [Concomitant]
  8. ESOMEPRAZOLE MAGNESIUM [Concomitant]
  9. DOMPERIDONE [Concomitant]
     Route: 048
  10. ENOXAPARIN SODIUM [Concomitant]
  11. BACLOFEN [Concomitant]
     Route: 048
  12. ESCITALOPRAM [Concomitant]
  13. ACETAMINOPHEN [Concomitant]
  14. YEAST [Concomitant]
  15. MICONAZOLE NITRATE [Concomitant]
  16. ZINC [Concomitant]
  17. CLEXANE [Concomitant]
     Route: 058
     Dates: start: 20051224

REACTIONS (5)
  - ENCEPHALOPATHY [None]
  - HEPATIC FAILURE [None]
  - MYOCARDITIS [None]
  - PNEUMONIA [None]
  - RENAL FAILURE [None]
